FAERS Safety Report 6535152-0 (Version None)
Quarter: 2010Q1

REPORT INFORMATION
  Report Type: 
  Country: None (occurrence: None)
  Receive Date: 20100113
  Receipt Date: 20100107
  Transmission Date: 20100710
  Serious: Yes (Other)
  Sender: FDA-Public Use
  Company Number: US-RB-000434-10

PATIENT
  Age: 70 Year
  Sex: Male

DRUGS (3)
  1. MUCINEX [Suspect]
     Indication: RESPIRATORY TRACT CONGESTION
     Route: 048
     Dates: start: 20100106
  2. ASPIRIN [Concomitant]
  3. PLAVIX [Concomitant]

REACTIONS (1)
  - HAEMOPTYSIS [None]
